FAERS Safety Report 20924936 (Version 1)
Quarter: 2022Q2

REPORT INFORMATION
  Report Type: Spontaneous
  Country: US (occurrence: None)
  Receive Date: 20220607
  Receipt Date: 20220607
  Transmission Date: 20220720
  Serious: Yes (Death)
  Sender: FDA-Public Use
  Company Number: None

PATIENT
  Age: 69 Year
  Sex: Male
  Weight: 81.45 kg

DRUGS (2)
  1. EVUSHELD [Suspect]
     Active Substance: CILGAVIMAB\TIXAGEVIMAB
     Indication: Immunosuppression
     Dosage: FREQUENCY : ONCE;?
     Route: 030
     Dates: start: 20220517
  2. EVUSHELD [Suspect]
     Active Substance: CILGAVIMAB\TIXAGEVIMAB
     Indication: COVID-19 prophylaxis

REACTIONS (6)
  - Hypotension [None]
  - Syncope [None]
  - Pulseless electrical activity [None]
  - Pneumonitis [None]
  - White blood cell count increased [None]
  - Blood lactic acid increased [None]

NARRATIVE: CASE EVENT DATE: 20220523
